FAERS Safety Report 6320275-1 (Version None)
Quarter: 2009Q3

REPORT INFORMATION
  Report Type: 
  Country: None (occurrence: None)
  Receive Date: 20090822
  Receipt Date: 20081029
  Transmission Date: 20100115
  Serious: No
  Sender: FDA-Public Use
  Company Number: US-ABBOTT-08P-163-0484876-00

PATIENT
  Sex: Female

DRUGS (1)
  1. NIASPAN [Suspect]
     Indication: DRUG USE FOR UNKNOWN INDICATION
     Route: 048
     Dates: start: 20071007

REACTIONS (5)
  - ERYTHEMA [None]
  - FLUSHING [None]
  - HOT FLUSH [None]
  - PRURITUS [None]
  - SKIN BURNING SENSATION [None]
